FAERS Safety Report 15921656 (Version 2)
Quarter: 2019Q1

REPORT INFORMATION
  Report Type: Spontaneous
  Country: US (occurrence: US)
  Receive Date: 20190205
  Receipt Date: 20190219
  Transmission Date: 20190417
  Serious: No
  Sender: FDA-Public Use
  Company Number: US-ALLERGAN-1769603US

PATIENT
  Age: 57 Year
  Sex: Female

DRUGS (2)
  1. BOTOX [Suspect]
     Active Substance: ONABOTULINUMTOXINA
     Indication: TORTICOLLIS
     Dosage: UNK,SINGLE
     Route: 030
     Dates: start: 20110623, end: 20110623
  2. BOTOX [Suspect]
     Active Substance: ONABOTULINUMTOXINA
     Indication: COMPLEX REGIONAL PAIN SYNDROME
     Dosage: 300 UNITS, SINGLE
     Route: 030
     Dates: start: 201103, end: 201103

REACTIONS (2)
  - Swelling face [Recovering/Resolving]
  - Off label use [Unknown]

NARRATIVE: CASE EVENT DATE: 201106
